FAERS Safety Report 4872732-2 (Version None)
Quarter: 2006Q1

REPORT INFORMATION
  Report Type: 
  Country: None (occurrence: None)
  Receive Date: 20060103
  Receipt Date: 20051221
  Transmission Date: 20060701
  Serious: Yes (Hospitalization, Other)
  Sender: FDA-Public Use
  Company Number: US_0502111719

PATIENT
  Age: 75 Year
  Sex: Female
  Weight: 77.3 kg

DRUGS (14)
  1. ZYPREXA [Suspect]
     Dosage: 7.5 MG, EACH EVENING
     Dates: start: 20010101, end: 20040101
  2. DEPAKOTE [Concomitant]
  3. CLOZARIL [Concomitant]
  4. NAMENDA [Concomitant]
  5. IMIPRAMINE [Concomitant]
  6. PEPCID [Concomitant]
  7. ESTROGENS SOL/INJ [Concomitant]
  8. LIDODERM (LIDOCAINE) [Concomitant]
  9. LIDOCAINE HCL (LIDOCAINE HYDROCHLORIDE) [Concomitant]
  10. LOPROX (CICLOPIROX OLAMINE) [Concomitant]
  11. OYXCONTIN (OXYCODONE HYDROCHLORIDE) [Concomitant]
  12. OSTEO BI-FLEX (CHONDROITIN SULFATE, GLUCOSAMINE HYDROCHLORIDE) [Concomitant]
  13. FLUDROCORTISONE ACETATE [Concomitant]
  14. QUINSUL (QUININE SULFATE) [Concomitant]

REACTIONS (26)
  - ACUTE MYOCARDIAL INFARCTION [None]
  - ANXIETY [None]
  - ARTERIOSCLEROSIS CORONARY ARTERY [None]
  - ATRIOVENTRICULAR BLOCK FIRST DEGREE [None]
  - BLOOD CHOLESTEROL INCREASED [None]
  - BLOOD PRESSURE INADEQUATELY CONTROLLED [None]
  - BLOOD TRIGLYCERIDES INCREASED [None]
  - BUNDLE BRANCH BLOCK RIGHT [None]
  - CONFUSIONAL STATE [None]
  - DEPRESSED LEVEL OF CONSCIOUSNESS [None]
  - DIABETES MELLITUS NON-INSULIN-DEPENDENT [None]
  - DYSPNOEA [None]
  - HEADACHE [None]
  - HIGH DENSITY LIPOPROTEIN DECREASED [None]
  - HYPOTENSION [None]
  - LIPASE INCREASED [None]
  - LOW DENSITY LIPOPROTEIN DECREASED [None]
  - MENTAL STATUS CHANGES [None]
  - OSTEOARTHRITIS [None]
  - POLYSUBSTANCE ABUSE [None]
  - RENAL FAILURE ACUTE [None]
  - SINUS TACHYCARDIA [None]
  - SUBARACHNOID HAEMORRHAGE [None]
  - TREMOR [None]
  - VASCULAR DEMENTIA [None]
  - VENTRICULAR HYPERTROPHY [None]
